FAERS Safety Report 12648668 (Version 2)
Quarter: 2016Q3

REPORT INFORMATION
  Report Type: Spontaneous
  Country: NL (occurrence: NL)
  Receive Date: 20160812
  Receipt Date: 20160830
  Transmission Date: 20161109
  Serious: Yes (Hospitalization)
  Sender: FDA-Public Use
  Company Number: NL-ELI_LILLY_AND_COMPANY-NL201608002710

PATIENT
  Age: 45 Year
  Sex: Male

DRUGS (1)
  1. ZYPADHERA [Suspect]
     Active Substance: OLANZAPINE PAMOATE
     Indication: PSYCHOTIC DISORDER
     Dosage: 300 MG, 2/M
     Route: 030
     Dates: start: 20160704

REACTIONS (5)
  - Leukocyturia [Unknown]
  - Pleuritic pain [Unknown]
  - Proteinuria [Unknown]
  - Pulmonary embolism [Recovering/Resolving]
  - Ketonuria [Unknown]

NARRATIVE: CASE EVENT DATE: 201607
